FAERS Safety Report 23341669 (Version 1)
Quarter: 2023Q4

REPORT INFORMATION
  Report Type: Spontaneous
  Country: US (occurrence: None)
  Receive Date: 20231227
  Receipt Date: 20231227
  Transmission Date: 20240110
  Serious: No
  Sender: FDA-Public Use
  Company Number: 2023A229014

PATIENT
  Age: 772 Month

DRUGS (1)
  1. SYMBICORT [Suspect]
     Active Substance: BUDESONIDE\FORMOTEROL FUMARATE DIHYDRATE
     Dosage: 160 UG/INHAL UNKNOWN
     Route: 055

REACTIONS (5)
  - Seasonal allergy [Unknown]
  - Device use issue [Unknown]
  - Product dose omission issue [Unknown]
  - Extra dose administered [Unknown]
  - Device malfunction [Unknown]

NARRATIVE: CASE EVENT DATE: 20230901
